FAERS Safety Report 21671664 (Version 2)
Quarter: 2023Q1

REPORT INFORMATION
  Report Type: Report from Study
  Country: US (occurrence: US)
  Receive Date: 20221202
  Receipt Date: 20230112
  Transmission Date: 20230418
  Serious: Yes (Other)
  Sender: FDA-Public Use
  Company Number: US-ACADIA PHARMACEUTICALS INC.-ACA-2022-PIM-003892

PATIENT
  Sex: Male

DRUGS (5)
  1. NUPLAZID [Suspect]
     Active Substance: PIMAVANSERIN TARTRATE
     Indication: Parkinson^s disease psychosis
     Dosage: 34 MILLIGRAM, QD
     Route: 048
     Dates: start: 202210
  2. NUPLAZID [Suspect]
     Active Substance: PIMAVANSERIN TARTRATE
     Indication: Parkinson^s disease
  3. SINEMET [Concomitant]
     Active Substance: CARBIDOPA\LEVODOPA
  4. COMTAN [Concomitant]
     Active Substance: ENTACAPONE
  5. CLONAZEPAM [Concomitant]
     Active Substance: CLONAZEPAM

REACTIONS (3)
  - Thrombosis [Unknown]
  - Abdominal pain upper [Recovered/Resolved]
  - Diarrhoea [Recovered/Resolved]
